FAERS Safety Report 10509150 (Version 1)
Quarter: 2014Q3

REPORT INFORMATION
  Report Type: Spontaneous
  Country: US (occurrence: None)
  Receive Date: 20140915
  Receipt Date: 20140915
  Transmission Date: 20150326
  Serious: Yes (Other)
  Sender: FDA-Public Use
  Company Number: 2014-US-005412

PATIENT
  Age: 61 Year
  Sex: Female

DRUGS (6)
  1. THYROID (THYROID) [Concomitant]
  2. ADDERALL SR (AMFETAMINE ASPARTATE, AMFETAMINE SULFATE, DEXAMFETAMINE SACCHARATE, DEXAMFETAMINE SULFATE) [Concomitant]
  3. MIRAPEX [Concomitant]
     Active Substance: PRAMIPEXOLE DIHYDROCHLORIDE
  4. BUSPAR (BUSPIRONE HYDROCHLORIDE) [Concomitant]
  5. XYREM [Suspect]
     Active Substance: SODIUM OXYBATE
     Indication: NARCOLEPSY
     Route: 048
     Dates: start: 201312, end: 2013
  6. LASIX [Concomitant]
     Active Substance: FUROSEMIDE

REACTIONS (9)
  - Head injury [None]
  - Fall [None]
  - Anxiety [None]
  - Weight decreased [None]
  - Somnambulism [None]
  - Malaise [None]
  - Poor quality sleep [None]
  - Face injury [None]
  - Periorbital contusion [None]

NARRATIVE: CASE EVENT DATE: 201404
